FAERS Safety Report 6167404-0 (Version None)
Quarter: 2009Q2

REPORT INFORMATION
  Report Type: 
  Country: None (occurrence: None)
  Receive Date: 20090424
  Receipt Date: 20090415
  Transmission Date: 20091009
  Serious: Yes (Hospitalization)
  Sender: FDA-Public Use
  Company Number: PHHO2009KR04954

PATIENT
  Sex: Male
  Weight: 66 kg

DRUGS (3)
  1. ZOLEDRONIC ACID [Suspect]
     Indication: MULTIPLE MYELOMA
     Dosage: 4 MG
     Route: 042
     Dates: start: 20080906
  2. VELCADE [Concomitant]
  3. DEXAMETHASONE [Concomitant]

REACTIONS (6)
  - ASTHENIA [None]
  - AZOTAEMIA [None]
  - BLOOD CREATININE INCREASED [None]
  - BLOOD UREA INCREASED [None]
  - DEHYDRATION [None]
  - HYPOPHAGIA [None]
